FAERS Safety Report 8780449 (Version 1)
Quarter: 2012Q4

REPORT INFORMATION
  Report Type: Spontaneous
  Country: KR (occurrence: None)
  Receive Date: 20120830
  Receipt Date: 20120830
  Transmission Date: 20130627
  Serious: Yes (Hospitalization, Other)
  Sender: FDA-Public Use
  Company Number: 2012P1054479

PATIENT
  Age: 46 Year
  Sex: Male

DRUGS (3)
  1. METRONIDAZOLE [Suspect]
  2. MOXIFLOXACIN [Concomitant]
  3. CEFTRIAZONE [Concomitant]

REACTIONS (5)
  - Toxic encephalopathy [None]
  - Paraesthesia [None]
  - Dysarthria [None]
  - Confusional state [None]
  - Disorientation [None]
